FAERS Safety Report 12430067 (Version 2)
Quarter: 2016Q2

REPORT INFORMATION
  Report Type: Spontaneous
  Country: US (occurrence: US)
  Receive Date: 20160602
  Receipt Date: 20160606
  Transmission Date: 20160815
  Serious: Yes (Hospitalization, Disabling, Other)
  Sender: FDA-Public Use
  Company Number: US-ENDO PHARMACEUTICALS INC.-2016-003498

PATIENT
  Age: 79 Year
  Sex: Female
  Weight: 44.49 kg

DRUGS (2)
  1. PREDNISONE TABLETS [Suspect]
     Active Substance: PREDNISONE
     Indication: ASTHMA
     Route: 048
  2. PREDNISONE TABLETS [Suspect]
     Active Substance: PREDNISONE
     Indication: HYPERSENSITIVITY
     Route: 065

REACTIONS (11)
  - Leg amputation [Unknown]
  - Vomiting [Unknown]
  - Malaise [Unknown]
  - Accident [Unknown]
  - Osteoporosis [Unknown]
  - Sternal injury [Unknown]
  - Weight decreased [Unknown]
  - Procedural complication [Unknown]
  - Viral diarrhoea [Unknown]
  - Diarrhoea [Unknown]
  - Drug ineffective [Unknown]

NARRATIVE: CASE EVENT DATE: 2003
